FAERS Safety Report 22298045 (Version 2)
Quarter: 2023Q2

REPORT INFORMATION
  Report Type: Report from Study
  Country: US (occurrence: US)
  Receive Date: 20230509
  Receipt Date: 20230518
  Transmission Date: 20230721
  Serious: Yes (Other)
  Sender: FDA-Public Use
  Company Number: US-ABBVIE-4758965

PATIENT
  Sex: Female

DRUGS (2)
  1. IMBRUVICA [Suspect]
     Active Substance: IBRUTINIB
     Indication: Lymphoma
     Dosage: FORM STRENGTH: 140 PRODUCT ?FORM STRENGTH UNITS: MILLIGRAM ?TWO PILLS PER DAY
     Route: 048
     Dates: start: 2022
  2. IMBRUVICA [Suspect]
     Active Substance: IBRUTINIB
     Indication: Lymphoma
     Dosage: FORM STRENGTH: 140 PRODUCT ?FORM STRENGTH UNITS: MILLIGRAM ?ONE PILL PER DAY
     Route: 048

REACTIONS (5)
  - Pleural effusion [Not Recovered/Not Resolved]
  - Lymphoma [Unknown]
  - Rash [Unknown]
  - Skin discolouration [Unknown]
  - Ephelides [Unknown]

NARRATIVE: CASE EVENT DATE: 20230401
